FAERS Safety Report 21111448 (Version 1)
Quarter: 2022Q3

REPORT INFORMATION
  Report Type: Spontaneous
  Country: CA (occurrence: CA)
  Receive Date: 20220721
  Receipt Date: 20220721
  Transmission Date: 20221026
  Serious: Yes (Other)
  Sender: FDA-Public Use
  Company Number: CA-BAUSCH-BL-2022-018222

PATIENT
  Age: 32 Year
  Sex: Female

DRUGS (12)
  1. DEXAMETHASONE [Suspect]
     Active Substance: DEXAMETHASONE
     Indication: Salvage therapy
     Route: 065
  2. ETOPOSIDE [Suspect]
     Active Substance: ETOPOSIDE
     Indication: Salvage therapy
     Route: 042
  3. ETOPOSIDE [Suspect]
     Active Substance: ETOPOSIDE
     Route: 042
  4. IFOSFAMIDE [Suspect]
     Active Substance: IFOSFAMIDE
     Indication: Salvage therapy
     Route: 042
  5. IFOSFAMIDE [Suspect]
     Active Substance: IFOSFAMIDE
     Route: 042
  6. ASPARAGINASE [Suspect]
     Active Substance: ASPARAGINASE
     Indication: Salvage therapy
     Route: 030
  7. METHOTREXATE [Suspect]
     Active Substance: METHOTREXATE
     Indication: Salvage therapy
     Route: 048
  8. CISPLATIN [Concomitant]
     Active Substance: CISPLATIN
     Indication: Salvage therapy
     Route: 042
  9. LEUCOVORIN [Concomitant]
     Active Substance: LEUCOVORIN
     Indication: Salvage therapy
     Route: 042
  10. MESNA [Concomitant]
     Active Substance: MESNA
     Indication: Salvage therapy
     Route: 042
  11. MESNA [Concomitant]
     Active Substance: MESNA
     Route: 042
  12. MESNA [Concomitant]
     Active Substance: MESNA
     Route: 042

REACTIONS (2)
  - Neutropenia [Unknown]
  - Thrombocytopenia [Unknown]
